FAERS Safety Report 18596597 (Version 2)
Quarter: 2021Q1

REPORT INFORMATION
  Report Type: Spontaneous
  Country: GB (occurrence: GB)
  Receive Date: 20201209
  Receipt Date: 20210104
  Transmission Date: 20210419
  Serious: Yes (Life-Threatening, Hospitalization, Other)
  Sender: FDA-Public Use
  Company Number: GB-MYLANLABS-2020M1100235

PATIENT
  Age: 11 Year
  Sex: Male

DRUGS (7)
  1. ZONISAMIDE. [Suspect]
     Active Substance: ZONISAMIDE
     Indication: MYOCLONIC EPILEPSY
     Dosage: 100 MILLIGRAM, QD (SLOWLY INCREASE THE DOSE TO 150 MG TWICE)
     Route: 065
     Dates: start: 201912, end: 20200108
  2. RUFINAMIDE [Concomitant]
     Active Substance: RUFINAMIDE
     Indication: DROP ATTACKS
     Dosage: UNK
     Route: 065
     Dates: start: 2020, end: 2020
  3. CARBAMAZEPINE. [Suspect]
     Active Substance: CARBAMAZEPINE
     Indication: PRODUCT USED FOR UNKNOWN INDICATION
     Dosage: UNK
     Route: 065
  4. SODIUM VALPROATE [Concomitant]
     Active Substance: VALPROATE SODIUM
     Indication: MYOCLONIC EPILEPSY
     Dosage: TWICE A DAY, RESTARTED AT A LOWER DOSE
     Route: 065
     Dates: start: 201908
  5. LEVETIRACETAM. [Concomitant]
     Active Substance: LEVETIRACETAM
     Indication: MYOCLONIC EPILEPSY
     Dosage: TWICE A DAY, RESTARTED
     Route: 065
     Dates: start: 201905
  6. CLOBAZAM. [Concomitant]
     Active Substance: CLOBAZAM
     Indication: MYOCLONIC EPILEPSY
     Dosage: 35 MILLIGRAM, QD, 10 MG IN THE MORNING AND 15 MG IN THE EVENING
     Route: 065
     Dates: start: 2017
  7. ZONISAMIDE. [Suspect]
     Active Substance: ZONISAMIDE
     Dosage: 150 MILLIGRAM (150 MILLIGRAM, BID, SLOWLY INCREASE THE DOSE)
     Route: 065
     Dates: start: 20200108

REACTIONS (2)
  - Respiratory distress [Recovered/Resolved]
  - Drug reaction with eosinophilia and systemic symptoms [Recovered/Resolved]

NARRATIVE: CASE EVENT DATE: 202001
